FAERS Safety Report 6691823-7 (Version None)
Quarter: 2010Q2

REPORT INFORMATION
  Report Type: 
  Country: None (occurrence: None)
  Receive Date: 20100422
  Receipt Date: 20100412
  Transmission Date: 20101027
  Serious: Yes (Hospitalization, Other)
  Sender: FDA-Public Use
  Company Number: PHHY2010SE21090

PATIENT
  Sex: Female

DRUGS (3)
  1. EXTAVIA [Suspect]
     Indication: MULTIPLE SCLEROSIS
     Dosage: 0.25 ML, UNK
     Route: 058
     Dates: start: 20100219
  2. EXTAVIA [Suspect]
     Dosage: 0.5 ML
     Route: 058
  3. EXTAVIA [Suspect]
     Dosage: 0.75 ML, UNK
     Route: 058

REACTIONS (12)
  - DYSPNOEA [None]
  - ERYTHEMA [None]
  - INJECTION SITE ERYTHEMA [None]
  - INJECTION SITE SWELLING [None]
  - LIP SWELLING [None]
  - MYALGIA [None]
  - NAUSEA [None]
  - PAIN [None]
  - PHARYNGEAL OEDEMA [None]
  - PRURITUS [None]
  - SLEEP DISORDER [None]
  - THROAT IRRITATION [None]
